FAERS Safety Report 8887327 (Version 2)
Quarter: 2012Q4

REPORT INFORMATION
  Report Type: 
  Country: US (occurrence: US)
  Receive Date: 20121101
  Receipt Date: 20121213
  Transmission Date: 20130627
  Serious: Yes (Other)
  Sender: FDA-Public Use
  Company Number: US-PFIZER INC-2012272099

PATIENT
  Sex: Female

DRUGS (1)
  1. ZOLOFT [Suspect]
     Dosage: UNK
     Dates: start: 2003

REACTIONS (3)
  - Dementia Alzheimer^s type [Unknown]
  - Pharyngeal inflammation [Unknown]
  - Oropharyngeal pain [Unknown]
